FAERS Safety Report 9086540 (Version 1)
Quarter: 2013Q1

REPORT INFORMATION
  Report Type: Spontaneous
  Country: US (occurrence: US)
  Receive Date: 20130131
  Receipt Date: 20130131
  Transmission Date: 20140127
  Serious: Yes (Other)
  Sender: FDA-Public Use
  Company Number: US-ABBOTT-12P-163-0925568-00

PATIENT
  Sex: 0

DRUGS (1)
  1. HUMIRA 40 MG/ 0.8 ML PRE-FILLED SYRINGE [Suspect]
     Indication: PSORIASIS

REACTIONS (8)
  - Necrotising fasciitis [Unknown]
  - Breast operation [Unknown]
  - Liver injury [Unknown]
  - Furuncle [Unknown]
  - Crying [Unknown]
  - Frustration [Unknown]
  - Psoriasis [Unknown]
  - Feeling abnormal [Unknown]
